FAERS Safety Report 23850547 (Version 1)
Quarter: 2024Q2

REPORT INFORMATION
  Report Type: Spontaneous
  Country: US (occurrence: US)
  Receive Date: 20240513
  Receipt Date: 20240513
  Transmission Date: 20240716
  Serious: Yes (Other)
  Sender: FDA-Public Use
  Company Number: US-JNJFOC-20240507218

PATIENT

DRUGS (3)
  1. INVEGA SUSTENNA [Suspect]
     Active Substance: PALIPERIDONE PALMITATE
     Indication: Product used for unknown indication
     Route: 030
     Dates: start: 20230411
  2. INVEGA SUSTENNA [Suspect]
     Active Substance: PALIPERIDONE PALMITATE
     Route: 030
     Dates: start: 20230414
  3. INVEGA SUSTENNA [Suspect]
     Active Substance: PALIPERIDONE PALMITATE

REACTIONS (11)
  - Hyperprolactinaemia [Recovered/Resolved]
  - Blunted affect [Unknown]
  - Feeling abnormal [Unknown]
  - Mania [Unknown]
  - Hormone level abnormal [Unknown]
  - Menstruation irregular [Unknown]
  - Anhedonia [Unknown]
  - Sexual dysfunction [Unknown]
  - Depersonalisation/derealisation disorder [Unknown]
  - Dissociation [Unknown]
  - Off label use [Unknown]
